FAERS Safety Report 6770227-2 (Version None)
Quarter: 2010Q2

REPORT INFORMATION
  Report Type: 
  Country: None (occurrence: None)
  Receive Date: 20100615
  Receipt Date: 20100607
  Transmission Date: 20101027
  Serious: Yes (Hospitalization)
  Sender: FDA-Public Use
  Company Number: FR-JNJFOC-20100603935

PATIENT
  Sex: Male
  Weight: 68 kg

DRUGS (11)
  1. IMODIUM [Suspect]
     Indication: DIARRHOEA
     Route: 048
  2. IRINOTECAN HCL [Suspect]
     Indication: COLORECTAL CANCER
     Route: 042
  3. FLUOROURACIL [Suspect]
     Indication: COLORECTAL CANCER
     Route: 042
  4. AMLOR [Suspect]
     Indication: HYPERTENSION
     Route: 048
  5. FOLINIC ACID [Suspect]
     Indication: DRUG USE FOR UNKNOWN INDICATION
     Route: 065
  6. AVASTIN [Suspect]
     Indication: COLORECTAL CANCER
     Route: 042
  7. GLYBURIDE [Suspect]
     Indication: TYPE 2 DIABETES MELLITUS
     Route: 048
  8. MEDIATOR [Suspect]
     Indication: TYPE 2 DIABETES MELLITUS
     Route: 048
  9. CELECTOL [Suspect]
     Indication: HYPERTENSION
     Route: 048
  10. NEXIUM [Suspect]
     Indication: GASTROOESOPHAGEAL REFLUX DISEASE
     Route: 048
  11. AMAREL [Suspect]
     Indication: TYPE 2 DIABETES MELLITUS
     Route: 048

REACTIONS (3)
  - DIARRHOEA [None]
  - INTENTIONAL DRUG MISUSE [None]
  - SUBILEUS [None]
